FAERS Safety Report 6942359-7 (Version None)
Quarter: 2010Q3

REPORT INFORMATION
  Report Type: 
  Country: None (occurrence: None)
  Receive Date: 20100826
  Receipt Date: 20100812
  Transmission Date: 20110219
  Serious: Yes (Other)
  Sender: FDA-Public Use
  Company Number: PHHY2010AU53252

PATIENT
  Sex: Male

DRUGS (2)
  1. GLEEVEC [Suspect]
     Dosage: UNK
  2. CARTIA XT [Concomitant]
     Dosage: UNK

REACTIONS (3)
  - AMNESIA [None]
  - BLOOD CALCIUM DECREASED [None]
  - BLOOD PRESSURE INCREASED [None]
